FAERS Safety Report 21632936 (Version 1)
Quarter: 2022Q4

REPORT INFORMATION
  Report Type: Report from Study
  Country: ES (occurrence: ES)
  Receive Date: 20221123
  Receipt Date: 20221123
  Transmission Date: 20230112
  Serious: Yes (Hospitalization, Other)
  Sender: FDA-Public Use
  Company Number: ES-BRISTOL-MYERS SQUIBB COMPANY-2022-141704

PATIENT
  Age: 58 Year
  Sex: Male

DRUGS (2)
  1. NIVOLUMAB [Suspect]
     Active Substance: NIVOLUMAB
     Indication: Mesothelioma
     Route: 065
     Dates: start: 20220531
  2. IPILIMUMAB [Suspect]
     Active Substance: IPILIMUMAB
     Indication: Mesothelioma
     Route: 065
     Dates: start: 20220531

REACTIONS (1)
  - Neuropathy peripheral [Not Recovered/Not Resolved]

NARRATIVE: CASE EVENT DATE: 20221117
